FAERS Safety Report 19596851 (Version 2)
Quarter: 2021Q4

REPORT INFORMATION
  Report Type: Spontaneous
  Country: US (occurrence: US)
  Receive Date: 20210722
  Receipt Date: 20211026
  Transmission Date: 20220303
  Serious: No
  Sender: FDA-Public Use
  Company Number: US-SA-SAC20210719000391

PATIENT
  Sex: Female

DRUGS (5)
  1. DUPIXENT [Suspect]
     Active Substance: DUPILUMAB
     Indication: Dermatitis atopic
     Dosage: 300 MG, QOW
     Route: 058
     Dates: start: 202010
  2. IBUPROFEN [Concomitant]
     Active Substance: IBUPROFEN
  3. NORETHINDRONE ACETATE [Concomitant]
     Active Substance: NORETHINDRONE ACETATE
  4. XYZAL [Concomitant]
     Active Substance: LEVOCETIRIZINE DIHYDROCHLORIDE
  5. CICLOPIROX [Concomitant]
     Active Substance: CICLOPIROX

REACTIONS (8)
  - Eczema [Unknown]
  - Pruritus [Unknown]
  - Skin weeping [Unknown]
  - Skin exfoliation [Unknown]
  - Skin fissures [Unknown]
  - Dry skin [Unknown]
  - Erythema [Unknown]
  - Dermatitis atopic [Unknown]
